FAERS Safety Report 8578271-X (Version None)
Quarter: 2012Q2

REPORT INFORMATION
  Report Type: 
  Country: None (occurrence: None)
  Receive Date: 20120423
  Receipt Date: 20100811
  Transmission Date: 20120825
  Serious: Yes (Other)
  Sender: FDA-Public Use
  Company Number: PHHY2010US08295

PATIENT
  Age: 4 Year
  Sex: Male
  Weight: 16.2 kg

DRUGS (1)
  1. EXJADE (*CGP 72670*) UNKNOWN [Suspect]
     Indication: IRON OVERLOAD
     Dosage: 125 MG, QD, ORAL, 625 MG, QD, ORAL , ORAL, 500 MG ALTERNATIVE, ORAL
     Route: 048
     Dates: start: 20100222, end: 20100412

REACTIONS (7)
  - NAUSEA [None]
  - HEPATIC ENZYME INCREASED [None]
  - VOMITING [None]
  - LIVER DISORDER [None]
  - DECREASED APPETITE [None]
  - ABDOMINAL PAIN [None]
  - HAEMOGLOBIN DECREASED [None]
